FAERS Safety Report 17041255 (Version 2)
Quarter: 2022Q1

REPORT INFORMATION
  Report Type: Spontaneous
  Country: CH (occurrence: CH)
  Receive Date: 20191118
  Receipt Date: 20220203
  Transmission Date: 20220424
  Serious: Yes (Other)
  Sender: FDA-Public Use
  Company Number: CH-SM-2019-17747

PATIENT
  Age: 80 Year
  Sex: Female

DRUGS (22)
  1. FLUOXETINE HYDROCHLORIDE [Suspect]
     Active Substance: FLUOXETINE HYDROCHLORIDE
     Dosage: 20 MILLIGRAM DAILY; 1-0-0-0
     Route: 048
     Dates: start: 20160429, end: 201811
  2. FLUOXETINE HYDROCHLORIDE [Suspect]
     Active Substance: FLUOXETINE HYDROCHLORIDE
     Dosage: 20 MILLIGRAM DAILY;
     Route: 048
     Dates: start: 2018
  3. PANTOPRAZOLE [Suspect]
     Active Substance: PANTOPRAZOLE
     Dosage: 40 MILLIGRAM DAILY; 1-0-0-0
     Route: 048
     Dates: start: 20190817
  4. IMODIUM [Suspect]
     Active Substance: LOPERAMIDE HYDROCHLORIDE
     Dosage: 2 MILLIGRAM DAILY; 1/2-0-1/2-0
     Route: 048
     Dates: start: 20190827
  5. MOTILIUM [Suspect]
     Active Substance: DOMPERIDONE
     Dosage: 30 MILLIGRAM DAILY; 1-1-1-0
     Route: 048
     Dates: start: 20190814
  6. LIORESAL [Suspect]
     Active Substance: BACLOFEN
     Dosage: 30 MILLIGRAM DAILY; 1-1-1-0
     Route: 048
     Dates: start: 20170923
  7. ASPIRIN [Concomitant]
     Active Substance: ASPIRIN
     Dosage: 100 MILLIGRAM DAILY; 1-0-0-0
     Route: 048
     Dates: start: 2008
  8. PERINDOPRIL [Concomitant]
     Active Substance: PERINDOPRIL
     Dosage: 5 MILLIGRAM DAILY; 1-0-0-0
     Route: 048
     Dates: start: 2009
  9. HERBALS\PLANTAGO OVATA LEAF [Concomitant]
     Active Substance: HERBALS\PLANTAGO OVATA LEAF
     Dosage: 2 DOSAGE FORMS DAILY; 1-0-1-0
     Route: 048
     Dates: start: 20190827
  10. ESTRIOL [Concomitant]
     Active Substance: ESTRIOL
     Dosage: 1 DOSAGE FORM= 1 OVULA
     Route: 067
     Dates: start: 2015
  11. CHOLECALCIFEROL [Concomitant]
     Active Substance: CHOLECALCIFEROL
     Dosage: 12 GTT DAILY; 4500 U/ML
     Route: 048
     Dates: start: 2012
  12. CYANOCOBALAMIN [Concomitant]
     Active Substance: CYANOCOBALAMIN
     Route: 030
     Dates: start: 2008
  13. LERCANIDIPINE HYDROCHLORIDE [Concomitant]
     Active Substance: LERCANIDIPINE HYDROCHLORIDE
     Dosage: 10 MILLIGRAM DAILY; 0-0-1/2-0
     Route: 048
     Dates: start: 2016, end: 201909
  14. LERCANIDIPINE HYDROCHLORIDE [Concomitant]
     Active Substance: LERCANIDIPINE HYDROCHLORIDE
     Dosage: 20 MILLIGRAM DAILY; 0-0-0-1-0 AT THE BEGINNING / MIDDLE OF SEPTEMBER 2019
     Route: 048
     Dates: start: 201909, end: 201910
  15. LERCANIDIPINE HYDROCHLORIDE [Concomitant]
     Active Substance: LERCANIDIPINE HYDROCHLORIDE
     Dosage: 10 MILLIGRAM DAILY; 0-0-1/2-0 START DATE: EXACTLY START DATE UNKNOWN, -SEP-2019 OR -OCT-2019
     Route: 048
     Dates: start: 201910
  16. FLUNITRAZEPAM [Concomitant]
     Active Substance: FLUNITRAZEPAM
     Dosage: 1.75 MILLIGRAM DAILY;
     Route: 048
     Dates: start: 20081113
  17. ACTIVATED CHARCOAL\DIMETHICONE [Concomitant]
     Active Substance: ACTIVATED CHARCOAL\DIMETHICONE
     Dosage: 168 MILLIGRAM DAILY; 1-1-1-1
     Route: 048
     Dates: start: 2014
  18. DAFALGAN [Concomitant]
     Active Substance: ACETAMINOPHEN
     Dosage: MAXIMUM OF 4 PER DAY
     Route: 048
     Dates: start: 20190827
  19. METAMIZOLE [Concomitant]
     Active Substance: METAMIZOLE
     Dosage: MAXIMUM OF 4 PER DAY
     Route: 048
     Dates: start: 20190827
  20. Valverde constipation syrup [Concomitant]
     Dosage: MAXIMUM OF 15 ML PER DAY
     Route: 048
  21. DICLOFENAC SODIUM [Concomitant]
     Active Substance: DICLOFENAC SODIUM
     Dosage: LOCAL APPLICATION
     Route: 065
     Dates: start: 20190827
  22. GLYCOL SALICYLATE [Concomitant]
     Active Substance: GLYCOL SALICYLATE
     Dosage: MEDICATION ANTIRHEUMATIC (COMFREY EXTRACT)
     Route: 065
     Dates: start: 20190827

REACTIONS (4)
  - Hyponatraemia [Not Recovered/Not Resolved]
  - Dizziness [Not Recovered/Not Resolved]
  - Hyponatraemia [Recovered/Resolved]
  - Inappropriate antidiuretic hormone secretion [Recovered/Resolved]

NARRATIVE: CASE EVENT DATE: 20180401
